FAERS Safety Report 4840444-7 (Version None)
Quarter: 2005Q4

REPORT INFORMATION
  Report Type: 
  Country: None (occurrence: None)
  Receive Date: 20051128
  Receipt Date: 20051128
  Transmission Date: 20060501
  Serious: Yes (Other)
  Sender: FDA-Public Use
  Company Number: None

PATIENT
  Age: 39 Year
  Sex: Male
  Weight: 100.6985 kg

DRUGS (2)
  1. INTERFERON 1.5 UG SQ 1 TIME WEEKLY  SCHERING-PLOUGH [Suspect]
     Indication: HEPATITIS C
     Dosage: 1.5 SQ  1 X WEEKLY  SQ
     Route: 058
     Dates: start: 20030901, end: 20040801
  2. REBETOL [Suspect]
     Indication: HEPATITIS C
     Dosage: 800MG  3X DAILY PO
     Route: 048
     Dates: start: 20030901, end: 20040801

REACTIONS (10)
  - ANXIETY [None]
  - ARTHRALGIA [None]
  - CONDITION AGGRAVATED [None]
  - DEPRESSION [None]
  - FEELING ABNORMAL [None]
  - GENERAL PHYSICAL HEALTH DETERIORATION [None]
  - IMPAIRED DRIVING ABILITY [None]
  - MYALGIA [None]
  - NERVOUS SYSTEM DISORDER [None]
  - VIRAL LOAD INCREASED [None]
